FAERS Safety Report 5078319-3 (Version None)
Quarter: 2006Q3

REPORT INFORMATION
  Report Type: 
  Country: None (occurrence: None)
  Receive Date: 20060811
  Receipt Date: 20060803
  Transmission Date: 20061208
  Serious: Yes (Hospitalization)
  Sender: FDA-Public Use
  Company Number: JP-JNJFOC-20040202741

PATIENT
  Sex: Female
  Weight: 51 kg

DRUGS (19)
  1. REMICADE [Suspect]
     Route: 042
  2. REMICADE [Suspect]
     Route: 042
  3. REMICADE [Suspect]
     Route: 042
  4. REMICADE [Suspect]
     Route: 042
  5. REMICADE [Suspect]
     Route: 042
  6. REMICADE [Suspect]
     Route: 042
  7. REMICADE [Suspect]
     Route: 042
  8. REMICADE [Suspect]
     Route: 042
  9. REMICADE [Suspect]
     Route: 042
  10. REMICADE [Suspect]
     Route: 042
  11. REMICADE [Suspect]
     Indication: CROHN'S DISEASE
     Route: 042
  12. PENTASA [Concomitant]
     Route: 048
  13. PENTASA [Concomitant]
     Indication: CROHN'S DISEASE
     Route: 048
  14. PREDONINE [Concomitant]
     Route: 048
  15. PREDONINE [Concomitant]
     Indication: AUTOIMMUNE HEPATITIS
     Route: 048
  16. PREDONINE [Concomitant]
     Indication: CROHN'S DISEASE
     Route: 048
  17. FLAGYL [Concomitant]
     Indication: CROHN'S DISEASE
     Route: 048
  18. CELESTONE [Concomitant]
     Indication: DERMATITIS PSORIASIFORM
  19. TRICINOLON [Concomitant]
     Indication: DERMATITIS PSORIASIFORM

REACTIONS (4)
  - ANAEMIA [None]
  - BLOOD CREATINE PHOSPHOKINASE INCREASED [None]
  - DERMATITIS PSORIASIFORM [None]
  - LUPUS-LIKE SYNDROME [None]
